FAERS Safety Report 21961429 (Version 1)
Quarter: 2023Q1

REPORT INFORMATION
  Report Type: Spontaneous
  Country: US (occurrence: US)
  Receive Date: 20230207
  Receipt Date: 20230207
  Transmission Date: 20230417
  Serious: No
  Sender: FDA-Public Use
  Company Number: US-ELI_LILLY_AND_COMPANY-US202301007569

PATIENT
  Sex: Female

DRUGS (1)
  1. MOUNJARO [Suspect]
     Active Substance: TIRZEPATIDE
     Indication: Product used for unknown indication
     Dosage: 5 MG, UNKNOWN
     Route: 065
     Dates: start: 20230110

REACTIONS (6)
  - Incorrect dose administered [Unknown]
  - Nausea [Unknown]
  - Injection site pain [Recovered/Resolved]
  - Injection site bruising [Unknown]
  - Injection site haemorrhage [Unknown]
  - Injection site discomfort [Unknown]
